FAERS Safety Report 14673649 (Version 1)
Quarter: 2018Q1

REPORT INFORMATION
  Report Type: Spontaneous
  Country: US (occurrence: US)
  Receive Date: 20180323
  Receipt Date: 20180323
  Transmission Date: 20180509
  Serious: Yes (Hospitalization, Other)
  Sender: FDA-Public Use
  Company Number: US-LUPIN PHARMACEUTICALS INC.-2018-02229

PATIENT
  Age: 58 Year
  Sex: Male

DRUGS (13)
  1. PIPERACILLIN AND TAZOBACTAM [Suspect]
     Active Substance: PIPERACILLIN SODIUM\TAZOBACTAM SODIUM
     Dosage: UNK
     Route: 065
  2. LEVOFLOXACIN. [Concomitant]
     Active Substance: LEVOFLOXACIN
     Indication: URINARY TRACT INFECTION
     Dosage: 750 MG, QD, FOR 6 WEEKS
     Route: 048
  3. LEVOFLOXACIN. [Concomitant]
     Active Substance: LEVOFLOXACIN
     Dosage: UNK
     Route: 065
  4. TOBRAMYCIN. [Suspect]
     Active Substance: TOBRAMYCIN
     Indication: ARTHRITIS BACTERIAL
     Dosage: 3.6 G, UNK
     Route: 050
  5. GENTAMICIN. [Concomitant]
     Active Substance: GENTAMICIN
     Dosage: 0.5 G, UNK
     Route: 065
  6. VANCOMYCIN [Suspect]
     Active Substance: VANCOMYCIN
     Dosage: 3 G, UNK
     Route: 050
  7. CEFTRIAXONE. [Suspect]
     Active Substance: CEFTRIAXONE
     Indication: ARTHRITIS BACTERIAL
     Dosage: UNK
     Route: 065
  8. PIPERACILLIN AND TAZOBACTAM [Suspect]
     Active Substance: PIPERACILLIN SODIUM\TAZOBACTAM SODIUM
     Indication: ARTHRITIS BACTERIAL
     Dosage: 3.375 G, TID
     Route: 042
  9. AZTREONAM. [Concomitant]
     Active Substance: AZTREONAM
     Indication: PRODUCT USED FOR UNKNOWN INDICATION
     Dosage: UNK
     Route: 065
  10. GENTAMICIN. [Concomitant]
     Active Substance: GENTAMICIN
     Indication: ARTHRITIS BACTERIAL
     Dosage: 0.5 G, UNK
     Route: 065
  11. TOBRAMYCIN. [Suspect]
     Active Substance: TOBRAMYCIN
     Dosage: 3.6 G, UNK
     Route: 050
  12. VANCOMYCIN [Suspect]
     Active Substance: VANCOMYCIN
     Dosage: 3 G, UNK
     Route: 050
  13. VANCOMYCIN [Suspect]
     Active Substance: VANCOMYCIN
     Indication: ARTHRITIS BACTERIAL
     Dosage: UNK
     Route: 050

REACTIONS (4)
  - Drug level increased [Recovered/Resolved]
  - Acute kidney injury [Recovered/Resolved]
  - Tubulointerstitial nephritis [Recovered/Resolved]
  - Renal tubular necrosis [Recovered/Resolved]
